FAERS Safety Report 6894723-2 (Version None)
Quarter: 2010Q3

REPORT INFORMATION
  Report Type: 
  Country: None (occurrence: None)
  Receive Date: 20100730
  Receipt Date: 20100730
  Transmission Date: 20110219
  Serious: No
  Sender: FDA-Public Use
  Company Number: None

PATIENT
  Sex: Male

DRUGS (1)
  1. METHYLPREDNISOLONE [Suspect]
     Indication: PRURITUS
     Dosage: 125 MG ONCE IV
     Route: 042
     Dates: start: 20100706

REACTIONS (1)
  - BLOOD GLUCOSE INCREASED [None]
